FAERS Safety Report 5226304-0 (Version None)
Quarter: 2007Q1

REPORT INFORMATION
  Report Type: 
  Country: None (occurrence: None)
  Receive Date: 20070201
  Receipt Date: 20070124
  Transmission Date: 20070707
  Serious: Yes (Death, Hospitalization)
  Sender: FDA-Public Use
  Company Number: US-ELI_LILLY_AND_COMPANY-US200603004923

PATIENT
  Age: 57 Year
  Sex: Male
  Weight: 81.632 kg

DRUGS (1)
  1. ZYPREXA [Suspect]
     Indication: NERVOUSNESS
     Dosage: 5 MG, UNK
     Route: 048
     Dates: start: 20011107, end: 20020319

REACTIONS (7)
  - DIABETES MELLITUS [None]
  - DIABETIC COMA [None]
  - HYPERGLYCAEMIA [None]
  - HYPEROSMOLAR STATE [None]
  - METABOLIC SYNDROME [None]
  - RHABDOMYOLYSIS [None]
  - TRANSFUSION [None]
